FAERS Safety Report 7513290-3 (Version None)
Quarter: 2011Q2

REPORT INFORMATION
  Report Type: 
  Country: None (occurrence: None)
  Receive Date: 20110525
  Receipt Date: 20110525
  Transmission Date: 20111010
  Serious: Yes (Disabling, Other)
  Sender: FDA-Public Use
  Company Number: None

PATIENT
  Sex: Female
  Weight: 61.2356 kg

DRUGS (1)
  1. OXYCODONE HCL [Suspect]
     Indication: SURGERY
     Dosage: 80- EVERY 4 HR
     Dates: start: 20110318, end: 20110319

REACTIONS (3)
  - SCAR [None]
  - NEOPLASM [None]
  - MASS [None]
